FAERS Safety Report 8875133 (Version 2)
Quarter: 2012Q4

REPORT INFORMATION
  Report Type: 
  Country: US (occurrence: US)
  Receive Date: 20121029
  Receipt Date: 20121122
  Transmission Date: 20130627
  Serious: No
  Sender: FDA-Public Use
  Company Number: US-PFIZER INC-2012264913

PATIENT
  Age: 78 Year
  Sex: Female

DRUGS (2)
  1. INLYTA [Suspect]
     Indication: CARCINOMA KIDNEY
     Dosage: 5 mg, q 12 hrs
     Dates: start: 20121015
  2. INLYTA [Suspect]
     Indication: SECONDARY MALIGNANT NEOPLASM OF LUNG

REACTIONS (2)
  - Amnesia [Unknown]
  - Speech disorder [Unknown]
